FAERS Safety Report 25099473 (Version 1)
Quarter: 2025Q1

REPORT INFORMATION
  Report Type: Report from Study
  Country: ZA (occurrence: ZA)
  Receive Date: 20250320
  Receipt Date: 20250320
  Transmission Date: 20250408
  Serious: Yes (Hospitalization)
  Sender: ALEXION PHARMACEUTICALS
  Company Number: ZA-AstraZeneca-CH-00826960A

PATIENT
  Age: 51 Year

DRUGS (7)
  1. DAPAGLIFLOZIN [Suspect]
     Active Substance: DAPAGLIFLOZIN
     Indication: Diabetes mellitus
  2. JANUMET [Concomitant]
     Active Substance: METFORMIN HYDROCHLORIDE\SITAGLIPTIN PHOSPHATE
     Indication: Diabetes mellitus
  3. AMLODIPINE BESYLATE\INDAPAMIDE\PERINDOPRIL ARGININE [Concomitant]
     Active Substance: AMLODIPINE BESYLATE\INDAPAMIDE\PERINDOPRIL ARGININE
     Indication: Hypertension
  4. MOXIFLOXACIN [Concomitant]
     Active Substance: MOXIFLOXACIN
  5. Mezibe plus [Concomitant]
     Indication: Hyperlipidaemia
  6. CLOPIDOGREL BISULFATE [Concomitant]
     Active Substance: CLOPIDOGREL BISULFATE
     Indication: Thrombosis prophylaxis
  7. Tendia [Concomitant]
     Indication: Diabetes mellitus

REACTIONS (2)
  - Blood pressure decreased [Unknown]
  - Dizziness [Unknown]
